FAERS Safety Report 12765911 (Version 2)
Quarter: 2016Q4

REPORT INFORMATION
  Report Type: Spontaneous
  Country: DE (occurrence: DE)
  Receive Date: 20160921
  Receipt Date: 20161019
  Transmission Date: 20170207
  Serious: Yes (Other)
  Sender: FDA-Public Use
  Company Number: PHHY2016DE128645

PATIENT
  Age: 50 Year
  Sex: Male

DRUGS (3)
  1. COSENTYX [Suspect]
     Active Substance: SECUKINUMAB
     Indication: PSORIASIS
     Dosage: 300 MG, QMO
     Route: 058
     Dates: start: 20150702
  2. SIMVASTATIN. [Concomitant]
     Active Substance: SIMVASTATIN
     Indication: HYPERTRIGLYCERIDAEMIA
     Dosage: 20 MG, QD
     Route: 048
     Dates: start: 20140120
  3. COSENTYX [Suspect]
     Active Substance: SECUKINUMAB
     Indication: PSORIATIC ARTHROPATHY

REACTIONS (5)
  - Staphylococcal infection [Recovered/Resolved]
  - Psoriasis [Unknown]
  - Staphylococcal skin infection [Recovered/Resolved]
  - Staphylococcal infection [Recovered/Resolved]
  - Staphylococcal skin infection [Recovered/Resolved]

NARRATIVE: CASE EVENT DATE: 20160801
